FAERS Safety Report 4960491-4 (Version None)
Quarter: 2006Q2

REPORT INFORMATION
  Report Type: 
  Country: None (occurrence: None)
  Receive Date: 20060403
  Receipt Date: 20051101
  Transmission Date: 20061013
  Serious: Yes (Death, Other)
  Sender: FDA-Public Use
  Company Number: PHEH2005US12092

PATIENT
  Age: 58 Year
  Sex: Male
  Weight: 127 kg

DRUGS (6)
  1. ZOMETA [Suspect]
     Indication: METASTASES TO BONE
     Dosage: 4 MG, ONCE/SINGLE
     Dates: start: 20051007, end: 20051007
  2. ALDACTAZIDE [Concomitant]
     Dosage: 25 MG, QD
  3. AVANDAMET [Concomitant]
     Dosage: 500 MG, BID
  4. GLUCOTROL XL [Concomitant]
     Dosage: 100 MG, QD
  5. ZOCOR [Concomitant]
     Dosage: 40 MG, QD
  6. LORTAB [Concomitant]
     Dosage: 10/500 MG, QID

REACTIONS (8)
  - BLOOD CREATININE INCREASED [None]
  - BLOOD UREA INCREASED [None]
  - DEHYDRATION [None]
  - DIALYSIS [None]
  - HYDRONEPHROSIS [None]
  - HYPOTENSION [None]
  - MALIGNANT NEOPLASM PROGRESSION [None]
  - RENAL FAILURE ACUTE [None]
